FAERS Safety Report 9437179 (Version 1)
Quarter: 2013Q3

REPORT INFORMATION
  Report Type: Spontaneous
  Country: US (occurrence: None)
  Receive Date: 20130718
  Receipt Date: 20130718
  Transmission Date: 20140515
  Serious: Yes (Other)
  Sender: FDA-Public Use
  Company Number: 96365

PATIENT
  Age: 55 Year
  Sex: Male
  Weight: 86.18 kg

DRUGS (1)
  1. MENTHOL [Suspect]
     Indication: PAIN
     Route: 061
     Dates: start: 20130701

REACTIONS (3)
  - Burning sensation [None]
  - Application site erythema [None]
  - Application site vesicles [None]
